FAERS Safety Report 15504357 (Version 1)
Quarter: 2018Q4

REPORT INFORMATION
  Report Type: Spontaneous
  Country: US (occurrence: US)
  Receive Date: 20181009
  Receipt Date: 20181009
  Transmission Date: 20190205
  Serious: Yes (Other)
  Sender: FDA-Public Use
  Company Number: None

PATIENT
  Age: 66 Year
  Sex: Female
  Weight: 66.6 kg

DRUGS (7)
  1. FASLODEX [Concomitant]
     Active Substance: FULVESTRANT
  2. ARIMIDEX [Concomitant]
     Active Substance: ANASTROZOLE
  3. CBD OIL [Concomitant]
     Active Substance: CANNABIDIOL\HERBALS
  4. IBUPROFEN. [Concomitant]
     Active Substance: IBUPROFEN
  5. IBRANCE [Suspect]
     Active Substance: PALBOCICLIB
     Indication: BREAST CANCER FEMALE
     Route: 048
     Dates: start: 20180906
  6. HYDROXYZINE [Concomitant]
     Active Substance: HYDROXYZINE HYDROCHLORIDE
  7. TRIAMCINOLONE [Concomitant]
     Active Substance: TRIAMCINOLONE

REACTIONS (2)
  - Respiratory tract congestion [None]
  - Productive cough [None]

NARRATIVE: CASE EVENT DATE: 20181009
